FAERS Safety Report 12781419 (Version 1)
Quarter: 2016Q3

REPORT INFORMATION
  Report Type: Report from Study
  Country: US (occurrence: US)
  Receive Date: 20160926
  Receipt Date: 20160926
  Transmission Date: 20161109
  Serious: Yes (Other)
  Sender: FDA-Public Use
  Company Number: US-ABBVIE-16K-163-1728159-00

PATIENT
  Sex: Female
  Weight: 90.8 kg

DRUGS (10)
  1. HUMIRA [Suspect]
     Active Substance: ADALIMUMAB
     Dosage: 1 WEEK AFTER LOADING DOSE
     Route: 058
     Dates: start: 2016, end: 2016
  2. HUMIRA [Suspect]
     Active Substance: ADALIMUMAB
     Route: 058
     Dates: start: 201609
  3. ATORVASTATIN [Concomitant]
     Active Substance: ATORVASTATIN
     Indication: BLOOD CHOLESTEROL INCREASED
  4. HUMIRA [Suspect]
     Active Substance: ADALIMUMAB
     Dosage: 1 WEEK AFTER 80MG DOSE
     Route: 058
     Dates: start: 201608, end: 201608
  5. HUMIRA [Suspect]
     Active Substance: ADALIMUMAB
     Dosage: 2 WEEKS AFTER 80 MG DOSE
     Route: 058
     Dates: start: 2016, end: 2016
  6. HUMIRA [Suspect]
     Active Substance: ADALIMUMAB
     Dosage: 2 WEEKS AFTER 80MG DOSE
     Route: 058
     Dates: start: 2016, end: 2016
  7. HUMIRA [Suspect]
     Active Substance: ADALIMUMAB
     Route: 058
     Dates: start: 2016, end: 2016
  8. HUMIRA [Suspect]
     Active Substance: ADALIMUMAB
     Route: 058
     Dates: start: 201603
  9. HUMIRA [Suspect]
     Active Substance: ADALIMUMAB
     Indication: PSORIASIS
     Dosage: LODING DOSE
     Route: 058
     Dates: start: 201602, end: 201602
  10. MULTI VITAMIN [Concomitant]
     Active Substance: VITAMINS
     Indication: VITAMIN SUPPLEMENTATION

REACTIONS (4)
  - Dyspnoea exertional [Not Recovered/Not Resolved]
  - Nuclear magnetic resonance imaging thoracic abnormal [Not Recovered/Not Resolved]
  - Psoriasis [Recovering/Resolving]
  - Scab [Not Recovered/Not Resolved]

NARRATIVE: CASE EVENT DATE: 2016
